FAERS Safety Report 4348683-9 (Version None)
Quarter: 2004Q2

REPORT INFORMATION
  Report Type: 
  Country: None (occurrence: None)
  Receive Date: 20040423
  Receipt Date: 20040414
  Transmission Date: 20050107
  Serious: Yes (Hospitalization)
  Sender: FDA-Public Use
  Company Number: 2004209540FR

PATIENT
  Age: 47 Year
  Sex: Male

DRUGS (4)
  1. SOLU-MEDROL [Suspect]
     Indication: BLADDER CANCER
     Dosage: 40 MG, CYCLIC, IV
     Route: 042
     Dates: start: 20040212
  2. GEMZAR [Suspect]
     Indication: BLADDER CANCER
     Dosage: 2.4 G, CYCLIC, IV
     Route: 042
     Dates: start: 20040212
  3. ZOPHREN (ONDANSETRON HYDROCHLORIDE) 2MG/ML [Suspect]
     Indication: BLADDER CANCER
     Dosage: 8 MG, CYCLIC, IV
     Route: 042
     Dates: start: 20040212
  4. VOGALENE (METOPIMAZINE) [Concomitant]

REACTIONS (6)
  - DERMATITIS EXFOLIATIVE [None]
  - LOCALISED OEDEMA [None]
  - OEDEMA PERIPHERAL [None]
  - PRURITUS [None]
  - RASH ERYTHEMATOUS [None]
  - RASH PAPULAR [None]
